FAERS Safety Report 10578243 (Version 1)
Quarter: 2014Q4

REPORT INFORMATION
  Report Type: Report from Study
  Country: CA (occurrence: CA)
  Receive Date: 20141112
  Receipt Date: 20141112
  Transmission Date: 20150529
  Serious: Yes (Hospitalization)
  Sender: FDA-Public Use
  Company Number: CA-BIOGENIDEC-2014BI116653

PATIENT
  Age: 62 Year
  Sex: Male

DRUGS (1)
  1. FAMPYRA [Suspect]
     Active Substance: DALFAMPRIDINE
     Indication: GAIT DISTURBANCE
     Route: 048
     Dates: start: 20140825

REACTIONS (7)
  - Periorbital haematoma [Not Recovered/Not Resolved]
  - Concussion [Not Recovered/Not Resolved]
  - Injury [Recovered/Resolved]
  - Periorbital contusion [Not Recovered/Not Resolved]
  - Blood pressure decreased [Recovered/Resolved]
  - Hypertension [Not Recovered/Not Resolved]
  - Loss of consciousness [Recovered/Resolved]

NARRATIVE: CASE EVENT DATE: 20141102
